FAERS Safety Report 5612639-6 (Version None)
Quarter: 2008Q1

REPORT INFORMATION
  Report Type: 
  Country: None (occurrence: None)
  Receive Date: 20080128
  Receipt Date: 20080115
  Transmission Date: 20080703
  Serious: Yes (Other)
  Sender: FDA-Public Use
  Company Number: A0704195A

PATIENT
  Age: 28 Year
  Sex: Male

DRUGS (1)
  1. UREA PEROXIDE [Suspect]
     Indication: DRUG USE FOR UNKNOWN INDICATION
     Dosage: AURAL

REACTIONS (5)
  - EAR DISCOMFORT [None]
  - EAR HAEMORRHAGE [None]
  - EAR INFECTION [None]
  - HYPOACUSIS [None]
  - TYMPANIC MEMBRANE PERFORATION [None]
